FAERS Safety Report 15117055 (Version 2)
Quarter: 2018Q4

REPORT INFORMATION
  Report Type: Report from Study
  Country: US (occurrence: US)
  Receive Date: 20180706
  Receipt Date: 20181020
  Transmission Date: 20190204
  Serious: Yes (Other)
  Sender: FDA-Public Use
  Company Number: PHEH2018US027792

PATIENT
  Sex: Female

DRUGS (1)
  1. GILENYA [Suspect]
     Active Substance: FINGOLIMOD HYDROCHLORIDE
     Indication: MULTIPLE SCLEROSIS
     Dosage: 0.5 MG, QD
     Route: 048
     Dates: start: 20170815

REACTIONS (3)
  - Dizziness [Recovering/Resolving]
  - Fatigue [Recovering/Resolving]
  - Multiple sclerosis relapse [Recovering/Resolving]
